FAERS Safety Report 10384296 (Version 1)
Quarter: 2014Q1

REPORT INFORMATION
  Report Type: Spontaneous
  Country: US (occurrence: None)
  Receive Date: 20140306
  Receipt Date: 20140306
  Transmission Date: 20141002
  Serious: Yes (Other)
  Sender: FDA-Public Use
  Company Number: 163-21880-13052396

PATIENT
  Age: 63 Year
  Sex: Female
  Weight: 96.62 kg

DRUGS (2)
  1. REVLIMID ( LENALIDOMIDE) ( 25 MILLIGRAM, CAPSULES) [Suspect]
     Indication: PLASMA CELL MYELOMA
     Route: 048
     Dates: start: 20130430
  2. DEXAMETHASONE [Concomitant]

REACTIONS (3)
  - Syncope [None]
  - Body temperature increased [None]
  - Hypotension [None]
